FAERS Safety Report 19227839 (Version 10)
Quarter: 2021Q4

REPORT INFORMATION
  Report Type: Report from Study
  Country: CN (occurrence: CN)
  Receive Date: 20210506
  Receipt Date: 20211210
  Transmission Date: 20220303
  Serious: Yes (Hospitalization)
  Sender: FDA-Public Use
  Company Number: NVSC2021CN098060

PATIENT
  Age: 57 Year
  Sex: Female
  Weight: 80 kg

DRUGS (9)
  1. RIBOCICLIB [Suspect]
     Active Substance: RIBOCICLIB
     Indication: HER2 negative breast cancer
     Dosage: UNK
     Route: 048
     Dates: start: 20190402, end: 20210401
  2. LETROZOLE [Suspect]
     Active Substance: LETROZOLE
     Indication: HER2 negative breast cancer
     Dosage: 2.5 MG, QD
     Route: 048
     Dates: start: 20190402, end: 20210428
  3. LETROZOLE [Suspect]
     Active Substance: LETROZOLE
     Dosage: UNK
     Route: 048
     Dates: start: 20210513
  4. NOVOLOG [Concomitant]
     Active Substance: INSULIN ASPART
     Indication: Type 2 diabetes mellitus
     Dosage: UNK
     Route: 065
     Dates: start: 201712
  5. AMLODIPINE BESYLATE [Concomitant]
     Active Substance: AMLODIPINE BESYLATE
     Indication: Hypertension
     Dosage: UNK
     Route: 065
     Dates: start: 201206
  6. TELMISARTAN [Concomitant]
     Active Substance: TELMISARTAN
     Indication: Hypertension
     Dosage: UNK
     Route: 065
     Dates: start: 201206
  7. RECOMBINANT HUMAN GRANULOCYTE COLONY STIMULAT [Concomitant]
     Indication: White blood cell count decreased
     Dosage: UNK
     Route: 065
     Dates: start: 20210413, end: 20210423
  8. RECOMBINANT HUMAN GRANULOCYTE COLONY STIMULAT [Concomitant]
     Indication: Neutrophil count decreased
  9. INTERLEUKIN NOS [Concomitant]
     Active Substance: INTERLEUKIN NOS
     Indication: Platelet count decreased
     Dosage: UNK
     Route: 065
     Dates: start: 20210409, end: 20210423

REACTIONS (2)
  - Leukaemia [Not Recovered/Not Resolved]
  - Second primary malignancy [Not Recovered/Not Resolved]

NARRATIVE: CASE EVENT DATE: 20210428
